FAERS Safety Report 4287589-0 (Version None)
Quarter: 2004Q1

REPORT INFORMATION
  Report Type: 
  Country: None (occurrence: None)
  Receive Date: 20040209
  Receipt Date: 20030730
  Transmission Date: 20041129
  Serious: No
  Sender: FDA-Public Use
  Company Number: US-GLAXOSMITHKLINE-A0418993A

PATIENT

DRUGS (1)
  1. PAXIL CR [Suspect]
     Dosage: 12.5MG UNKNOWN
     Route: 048

REACTIONS (1)
  - NERVOUSNESS [None]
